FAERS Safety Report 21343286 (Version 1)
Quarter: 2022Q3

REPORT INFORMATION
  Report Type: Spontaneous
  Country: US (occurrence: None)
  Receive Date: 20220916
  Receipt Date: 20220916
  Transmission Date: 20221027
  Serious: No
  Sender: FDA-Public Use
  Company Number: None

PATIENT
  Sex: Male

DRUGS (2)
  1. SIMVASTATIN [Suspect]
     Active Substance: SIMVASTATIN
  2. PRAVASTATIN [Suspect]
     Active Substance: PRAVASTATIN

REACTIONS (2)
  - Drug intolerance [None]
  - Myalgia [None]
